FAERS Safety Report 5356764-6 (Version None)
Quarter: 2007Q2

REPORT INFORMATION
  Report Type: 
  Country: None (occurrence: None)
  Receive Date: 20070614
  Receipt Date: 20060628
  Transmission Date: 20071010
  Serious: No
  Sender: FDA-Public Use
  Company Number: US-ASTRAZENECA-2006UW13672

PATIENT
  Age: 70 Year
  Sex: Female
  Weight: 70.8 kg

DRUGS (6)
  1. ATACAND [Suspect]
     Indication: HYPERTENSION
     Route: 048
     Dates: start: 20060601
  2. ATACAND [Suspect]
     Indication: CARDIAC FAILURE
     Route: 048
     Dates: start: 20060601
  3. XANAX [Concomitant]
  4. CELEXA [Concomitant]
  5. HYDROCHLOROTHIAZIDE [Concomitant]
  6. TOPROL-XL [Concomitant]
     Route: 048

REACTIONS (3)
  - ARTHRALGIA [None]
  - MUSCLE SPASMS [None]
  - SWELLING [None]
